FAERS Safety Report 10703235 (Version 3)
Quarter: 2015Q3

REPORT INFORMATION
  Report Type: Spontaneous
  Country: IT (occurrence: IT)
  Receive Date: 20150112
  Receipt Date: 20150907
  Transmission Date: 20151125
  Serious: Yes (Hospitalization)
  Sender: FDA-Public Use
  Company Number: IT-ROCHE-1518811

PATIENT
  Age: 76 Year
  Sex: Male

DRUGS (4)
  1. DELTACORTENE [Concomitant]
     Active Substance: PREDNISONE
     Route: 048
  2. MABTHERA [Suspect]
     Active Substance: RITUXIMAB
     Indication: MANTLE CELL LYMPHOMA
     Dosage: 1 VIAL, 500 MG 50 ML
     Route: 041
     Dates: start: 20141217, end: 20141217
  3. LEVACT (ITALY) [Suspect]
     Active Substance: BENDAMUSTINE HYDROCHLORIDE
     Indication: MANTLE CELL LYMPHOMA
     Dosage: 2.5 MG/ML, POWDER FOR CONCENTRATE FOR SOLUTION, 5 X GLASS VIALS, 25 MG
     Route: 041
     Dates: start: 20141125, end: 20141217
  4. ARACYTIN [Suspect]
     Active Substance: CYTARABINE
     Indication: MANTLE CELL LYMPHOMA
     Dosage: 100 MG/5 ML, POWDER AND SOLVENT FOR SOLUTION FOR INJECTION, VIAL OF POWDER + VIAL OF SOLVENT 5 ML
     Route: 041
     Dates: start: 20141125, end: 20141217

REACTIONS (1)
  - Deep vein thrombosis [Recovering/Resolving]

NARRATIVE: CASE EVENT DATE: 20150105
